FAERS Safety Report 13029972 (Version 1)
Quarter: 2016Q4

REPORT INFORMATION
  Report Type: Report from Study
  Country: US (occurrence: US)
  Receive Date: 20161215
  Receipt Date: 20161215
  Transmission Date: 20170207
  Serious: Yes (Hospitalization, Other)
  Sender: FDA-Public Use
  Company Number: US-JNJFOC-20160612365

PATIENT
  Age: 83 Year
  Sex: Male

DRUGS (4)
  1. TIMOLOL MALEATE. [Concomitant]
     Active Substance: TIMOLOL MALEATE
  2. IBRUTINIB [Suspect]
     Active Substance: IBRUTINIB
     Indication: CHRONIC LYMPHOCYTIC LEUKAEMIA
     Dosage: 420 MG, QD, CYCLE 28 DAYS
     Route: 048
     Dates: start: 20160107, end: 20160526
  3. IBRUTINIB [Suspect]
     Active Substance: IBRUTINIB
     Indication: THERAPY NAIVE
     Dosage: 420 MG, QD, CYCLE 28 DAYS
     Route: 048
     Dates: start: 20160107, end: 20160526
  4. BISOPROLOL FUMARATE. [Concomitant]
     Active Substance: BISOPROLOL FUMARATE

REACTIONS (2)
  - Presyncope [Recovering/Resolving]
  - Atrioventricular block first degree [Recovering/Resolving]

NARRATIVE: CASE EVENT DATE: 20160520
